FAERS Safety Report 14573763 (Version 2)
Quarter: 2018Q2

REPORT INFORMATION
  Report Type: Spontaneous
  Country: JP (occurrence: JP)
  Receive Date: 20180226
  Receipt Date: 20180406
  Transmission Date: 20180711
  Serious: Yes (Hospitalization, Other)
  Sender: FDA-Public Use
  Company Number: PHJP2018JP004335

PATIENT
  Sex: Male

DRUGS (1)
  1. TASIGNA [Suspect]
     Active Substance: NILOTINIB
     Indication: CHRONIC MYELOID LEUKAEMIA
     Dosage: 600 MG, QD
     Route: 048
     Dates: start: 2016, end: 201802

REACTIONS (3)
  - Body temperature decreased [Unknown]
  - Atrial fibrillation [Unknown]
  - Cerebral artery embolism [Not Recovered/Not Resolved]

NARRATIVE: CASE EVENT DATE: 201802
